FAERS Safety Report 10742679 (Version 1)
Quarter: 2015Q1

REPORT INFORMATION
  Report Type: Spontaneous
  Country: DE (occurrence: DE)
  Receive Date: 20150127
  Receipt Date: 20150127
  Transmission Date: 20150721
  Serious: Yes (Hospitalization, Other)
  Sender: FDA-Public Use
  Company Number: DE-TEVA-536029GER

PATIENT
  Sex: Female

DRUGS (1)
  1. EFFENTORA [Suspect]
     Active Substance: FENTANYL CITRATE
     Route: 002

REACTIONS (2)
  - Drug dependence [Unknown]
  - Drug detoxification [Unknown]
